FAERS Safety Report 7483363-2 (Version None)
Quarter: 2011Q2

REPORT INFORMATION
  Report Type: 
  Country: None (occurrence: None)
  Receive Date: 20110517
  Receipt Date: 20110420
  Transmission Date: 20111010
  Serious: Yes (Hospitalization, Other)
  Sender: FDA-Public Use
  Company Number: US-BAYER-200934042NA

PATIENT
  Age: 26 Year
  Sex: Female

DRUGS (6)
  1. IBUPROFEN [Concomitant]
  2. YASMIN [Suspect]
     Indication: PRODUCT USED FOR UNKNOWN INDICATION
     Dosage: UNK UNK, QD
     Route: 048
     Dates: start: 20081001, end: 20081115
  3. CLINDAMYCIN [Concomitant]
  4. YAZ [Suspect]
     Indication: PRODUCT USED FOR UNKNOWN INDICATION
     Dosage: YAZ USED IN 2008, UNSURE OF THE DATES JUNE-NOVEMBER
     Route: 048
     Dates: start: 20080101, end: 20080615
  5. TRAMADOL HYDROCHLORIDE [Concomitant]
  6. ZITHROMAX [Concomitant]

REACTIONS (5)
  - THROMBOCYTOPENIA [None]
  - MENTAL DISORDER [None]
  - PULMONARY EMBOLISM [None]
  - CHOLELITHIASIS [None]
  - PAIN [None]
